FAERS Safety Report 23315155 (Version 2)
Quarter: 2024Q1

REPORT INFORMATION
  Report Type: Report from Study
  Country: CA (occurrence: CA)
  Receive Date: 20231219
  Receipt Date: 20240220
  Transmission Date: 20240410
  Serious: Yes (Other)
  Sender: FDA-Public Use
  Company Number: CA-MYLANLABS-2023M1063076

PATIENT

DRUGS (5)
  1. HULIO [Suspect]
     Active Substance: ADALIMUMAB-FKJP
     Indication: Ankylosing spondylitis
     Dosage: 160 MILLIGRAM
     Route: 065
  2. HULIO [Suspect]
     Active Substance: ADALIMUMAB-FKJP
     Dosage: 80 MILLIGRAM
     Route: 065
  3. HULIO [Suspect]
     Active Substance: ADALIMUMAB-FKJP
     Dosage: 40 MILLIGRAM, BIWEEKLY
     Route: 065
  4. HULIO [Suspect]
     Active Substance: ADALIMUMAB-FKJP
     Dosage: 40 MILLIGRAM, BIWEEKLY
     Route: 058
     Dates: start: 20230521, end: 202312
  5. HULIO [Suspect]
     Active Substance: ADALIMUMAB-FKJP
     Dosage: UNK
     Route: 065
     Dates: start: 20240211

REACTIONS (3)
  - Inflammatory bowel disease [Unknown]
  - Skin lesion [Unknown]
  - Product dose omission issue [Unknown]

NARRATIVE: CASE EVENT DATE: 20231203
